FAERS Safety Report 17314284 (Version 1)
Quarter: 2020Q1

REPORT INFORMATION
  Report Type: Spontaneous
  Country: US (occurrence: US)
  Receive Date: 20200124
  Receipt Date: 20200124
  Transmission Date: 20200409
  Serious: No
  Sender: FDA-Public Use
  Company Number: US-SUN PHARMACEUTICAL INDUSTRIES LTD-2018R1-232407

PATIENT
  Sex: Male

DRUGS (1)
  1. LEVULAN KERASTICK [Suspect]
     Active Substance: AMINOLEVULINIC ACID HYDROCHLORIDE
     Indication: ACTINIC KERATOSIS
     Dosage: UNK
     Route: 065
     Dates: start: 20181129, end: 20181129

REACTIONS (5)
  - Erythema [Unknown]
  - Pustule [Unknown]
  - Pain [Unknown]
  - Hypersensitivity [Unknown]
  - Swelling [Unknown]
